FAERS Safety Report 10216985 (Version 1)
Quarter: 2014Q2

REPORT INFORMATION
  Report Type: Spontaneous
  Country: GB (occurrence: GB)
  Receive Date: 20140604
  Receipt Date: 20140604
  Transmission Date: 20141212
  Serious: Yes (Congenital Anomaly)
  Sender: FDA-Public Use
  Company Number: GB-BIOMARINAP-GB-2014-103379

PATIENT
  Age: 0 Day
  Sex: Male
  Weight: 2.3 kg

DRUGS (1)
  1. ALDURAZYME [Suspect]
     Indication: MATERNAL EXPOSURE TIMING UNSPECIFIED
     Dosage: UNK, QD
     Route: 064

REACTIONS (2)
  - Congenital retinoblastoma [Not Recovered/Not Resolved]
  - Exposure during pregnancy [Not Recovered/Not Resolved]
